FAERS Safety Report 7349245-1 (Version None)
Quarter: 2011Q1

REPORT INFORMATION
  Report Type: 
  Country: None (occurrence: None)
  Receive Date: 20110304
  Receipt Date: 20110217
  Transmission Date: 20110831
  Serious: Yes (Hospitalization)
  Sender: FDA-Public Use
  Company Number: 019494

PATIENT
  Sex: Female

DRUGS (6)
  1. OMEPRAZOLE [Concomitant]
  2. LEVOTHYROXINE SODIUM [Concomitant]
  3. PANTOPRAZOLE [Concomitant]
  4. QUENSYL [Concomitant]
  5. PREDNISOLONE [Concomitant]
  6. CIMZIA [Suspect]
     Indication: RHEUMATOID ARTHRITIS
     Dosage: 200 MG 1X/2 WEEKS, SUBCUTANEOUS
     Route: 058
     Dates: start: 20100318

REACTIONS (16)
  - ANAEMIA [None]
  - ALBUMIN URINE PRESENT [None]
  - URINE KETONE BODY PRESENT [None]
  - RED BLOOD CELLS URINE POSITIVE [None]
  - BACTERIAL TEST POSITIVE [None]
  - URINE ANALYSIS ABNORMAL [None]
  - RED BLOOD CELL SEDIMENTATION RATE INCREASED [None]
  - PROTHROMBIN TIME PROLONGED [None]
  - WHITE BLOOD CELL COUNT DECREASED [None]
  - GASTRITIS [None]
  - WHITE BLOOD CELLS URINE POSITIVE [None]
  - GASTROENTERITIS [None]
  - GLOMERULAR FILTRATION RATE DECREASED [None]
  - INFECTION [None]
  - HIATUS HERNIA [None]
  - PROTEIN URINE PRESENT [None]
